FAERS Safety Report 5514872-0 (Version None)
Quarter: 2007Q4

REPORT INFORMATION
  Report Type: 
  Country: None (occurrence: None)
  Receive Date: 20071113
  Receipt Date: 20070516
  Transmission Date: 20080405
  Serious: No
  Sender: FDA-Public Use
  Company Number: A0601970A

PATIENT
  Age: 62 Year
  Sex: Male

DRUGS (12)
  1. COREG [Suspect]
     Dosage: 12.5MG TWICE PER DAY
     Route: 048
  2. COREG CR [Suspect]
     Dosage: 80MG PER DAY
     Route: 048
     Dates: start: 20070401, end: 20070407
  3. WARFARIN SODIUM [Concomitant]
  4. DARVOCET [Concomitant]
  5. LIPITOR [Concomitant]
  6. TRICOR [Concomitant]
  7. COVERA-HS [Concomitant]
  8. METFORMIN HCL [Concomitant]
  9. PREVACID [Concomitant]
  10. VALIUM [Concomitant]
  11. MIRALAX [Concomitant]
  12. FLOMAX [Concomitant]

REACTIONS (5)
  - CONSTIPATION [None]
  - DIARRHOEA [None]
  - FATIGUE [None]
  - OVERDOSE [None]
  - STOMACH DISCOMFORT [None]
